FAERS Safety Report 10652003 (Version 2)
Quarter: 2015Q2

REPORT INFORMATION
  Report Type: Spontaneous
  Country: US (occurrence: US)
  Receive Date: 20141215
  Receipt Date: 20150624
  Transmission Date: 20150821
  Serious: No
  Sender: FDA-Public Use
  Company Number: US-PFIZER INC-2014340649

PATIENT
  Sex: Female

DRUGS (2)
  1. LYRICA [Suspect]
     Active Substance: PREGABALIN
     Dosage: 100 MG, EVERY 4 HRS
  2. LYRICA [Suspect]
     Active Substance: PREGABALIN
     Dosage: 150 MG, EVERY 4 HRS

REACTIONS (3)
  - Pain [Unknown]
  - Prescribed overdose [Unknown]
  - Drug ineffective [Unknown]
